FAERS Safety Report 8437463-0 (Version None)
Quarter: 2012Q2

REPORT INFORMATION
  Report Type: 
  Country: None (occurrence: None)
  Receive Date: 20120614
  Receipt Date: 20120328
  Transmission Date: 20120825
  Serious: No
  Sender: FDA-Public Use
  Company Number: US-AMGEN-USASP2012019926

PATIENT
  Age: 66 Year
  Sex: Female

DRUGS (10)
  1. METOPROLOL TARTRATE [Concomitant]
     Dosage: UNK
  2. LYRICA [Concomitant]
     Dosage: UNK
  3. CYCLOBENZAPRINE [Concomitant]
     Dosage: UNK
  4. TRAMADOL HCL [Concomitant]
     Dosage: UNK
  5. ENBREL [Suspect]
     Indication: RHEUMATOID ARTHRITIS
     Dosage: 50 MG, QWK
     Dates: start: 20120101
  6. CLONAZEPAM [Concomitant]
     Dosage: UNK
  7. CALCIUM [Concomitant]
     Dosage: UNK
  8. PROLIA [Suspect]
     Dosage: UNK
  9. LIPITOR [Concomitant]
     Dosage: 10 MG, UNK
  10. LIPITOR [Concomitant]
     Dosage: 40 MG, UNK
     Dates: start: 20120220

REACTIONS (4)
  - NASOPHARYNGITIS [None]
  - PAIN IN EXTREMITY [None]
  - OEDEMA PERIPHERAL [None]
  - THERAPEUTIC RESPONSE DECREASED [None]
